FAERS Safety Report 6192806-6 (Version None)
Quarter: 2009Q2

REPORT INFORMATION
  Report Type: 
  Country: None (occurrence: None)
  Receive Date: 20090518
  Receipt Date: 20090508
  Transmission Date: 20091009
  Serious: Yes (Hospitalization)
  Sender: FDA-Public Use
  Company Number: FI-ASTRAZENECA-2009SE01001

PATIENT
  Age: 74 Year
  Sex: Male
  Weight: 66 kg

DRUGS (16)
  1. SEROQUEL [Suspect]
     Indication: HALLUCINATION
     Route: 048
  2. SEROQUEL [Suspect]
     Indication: DELUSION
     Route: 048
  3. SEROQUEL [Suspect]
     Dosage: DOSE GRADUALLY ESCALATED FROM 50 MG DAILY TO 150 MG DAILY
     Route: 048
  4. SEROQUEL [Suspect]
     Dosage: DOSE GRADUALLY ESCALATED FROM 50 MG DAILY TO 150 MG DAILY
     Route: 048
  5. SEROQUEL [Suspect]
     Route: 048
  6. SEROQUEL [Suspect]
     Route: 048
  7. DONERATIO [Concomitant]
     Indication: DEMENTIA ALZHEIMER'S TYPE
     Route: 048
  8. TENOX [Concomitant]
     Route: 048
  9. LANTUS [Concomitant]
     Indication: DIABETES MELLITUS
     Route: 058
  10. NOVO RAPID [Concomitant]
     Indication: DIABETES MELLITUS
     Dosage: 2-4 IU
     Route: 058
  11. KALCIPOS-D [Concomitant]
     Route: 048
  12. LINATIL HEXAL COMP [Concomitant]
     Dosage: 20MG/12,5MG
     Route: 048
  13. AMLODIPINE [Concomitant]
     Route: 048
  14. SYMBICORT [Concomitant]
     Route: 055
  15. VENTOLIN [Concomitant]
     Route: 065
  16. SPIRIVA [Concomitant]
     Route: 055

REACTIONS (4)
  - LUNG DISORDER [None]
  - OFF LABEL USE [None]
  - PULMONARY OEDEMA [None]
  - WEIGHT INCREASED [None]
